FAERS Safety Report 7490573-7 (Version None)
Quarter: 2011Q2

REPORT INFORMATION
  Report Type: 
  Country: None (occurrence: None)
  Receive Date: 20110519
  Receipt Date: 20110506
  Transmission Date: 20111010
  Serious: Yes (Other)
  Sender: FDA-Public Use
  Company Number: US-ELI_LILLY_AND_COMPANY-US201105003045

PATIENT
  Age: 79 Year
  Sex: Female

DRUGS (2)
  1. FORTEO [Suspect]
     Indication: OSTEOPOROSIS
     Dosage: 20 UG, QD
     Route: 065
  2. DIGOXIN [Concomitant]
     Dosage: UNK, UNKNOWN
     Route: 065

REACTIONS (6)
  - GAIT DISTURBANCE [None]
  - CARDIAC FAILURE CONGESTIVE [None]
  - ARTHRALGIA [None]
  - MYALGIA [None]
  - ASTHENIA [None]
  - DEPRESSED MOOD [None]
